FAERS Safety Report 7152307-5 (Version None)
Quarter: 2010Q4

REPORT INFORMATION
  Report Type: 
  Country: None (occurrence: None)
  Receive Date: 20101209
  Receipt Date: 20101209
  Transmission Date: 20110411
  Serious: Yes (Disabling)
  Sender: FDA-Public Use
  Company Number: None

PATIENT
  Age: 71 Year
  Sex: Female
  Weight: 68.2 kg

DRUGS (2)
  1. REGLAN [Suspect]
     Indication: NAUSEA
     Dates: start: 20090401
  2. REGLAN [Suspect]
     Indication: NAUSEA
     Dates: start: 20100701

REACTIONS (5)
  - COMMUNICATION DISORDER [None]
  - FALL [None]
  - MOVEMENT DISORDER [None]
  - ORAL PAIN [None]
  - TARDIVE DYSKINESIA [None]
